FAERS Safety Report 7629333-2 (Version None)
Quarter: 2011Q3

REPORT INFORMATION
  Report Type: 
  Country: None (occurrence: None)
  Receive Date: 20110722
  Receipt Date: 20110718
  Transmission Date: 20111222
  Serious: No
  Sender: FDA-Public Use
  Company Number: US-BAYER-2011-063046

PATIENT
  Sex: Female

DRUGS (1)
  1. SAFYRAL [Suspect]
     Dosage: UNK
     Dates: start: 20110717

REACTIONS (2)
  - INSOMNIA [None]
  - NAUSEA [None]
